FAERS Safety Report 6643917-X (Version None)
Quarter: 2010Q1

REPORT INFORMATION
  Report Type: 
  Country: None (occurrence: None)
  Receive Date: 20100322
  Receipt Date: 20100311
  Transmission Date: 20100710
  Serious: Yes (Other)
  Sender: FDA-Public Use
  Company Number: US-ELI_LILLY_AND_COMPANY-US200906005619

PATIENT
  Sex: Female

DRUGS (13)
  1. BYETTA [Suspect]
     Dosage: 5 UG, 2/D
     Dates: start: 20080701
  2. CYMBALTA [Concomitant]
     Dosage: 60 MG, DAILY (1/D)
  3. GLUCOPHAGE [Concomitant]
  4. GLIPIZIDE [Concomitant]
  5. PRILOSEC [Concomitant]
  6. HYDROCHLOROTHIAZIDE [Concomitant]
     Dosage: 25 MG, DAILY (1/D)
  7. DIFLUCAN [Concomitant]
     Dosage: 150 MG, DAILY (1/D)
  8. BACTRIM DS [Concomitant]
     Dosage: UNK, 2/D
  9. CLONIDINE [Concomitant]
  10. FUROSEMIDE [Concomitant]
  11. ALPRAZOLAM [Concomitant]
  12. PROMETHAZINE [Concomitant]
  13. ALENDRONATE SODIUM [Concomitant]

REACTIONS (4)
  - CHOLECYSTECTOMY [None]
  - GASTRITIS [None]
  - PANCREATITIS ACUTE [None]
  - RENAL INJURY [None]
